FAERS Safety Report 14241697 (Version 5)
Quarter: 2020Q4

REPORT INFORMATION
  Report Type: Report from Study
  Country: US (occurrence: US)
  Receive Date: 20171201
  Receipt Date: 20201203
  Transmission Date: 20210113
  Serious: Yes (Life-Threatening, Hospitalization)
  Sender: FDA-Public Use
  Company Number: US-ROCHE-2028336

PATIENT
  Age: 61 Year
  Sex: Male
  Weight: 51.4 kg

DRUGS (17)
  1. ATEZOLIZUMAB. [Suspect]
     Active Substance: ATEZOLIZUMAB
     Route: 042
     Dates: start: 20180125
  2. PACLITAXEL. [Suspect]
     Active Substance: PACLITAXEL
     Indication: NON-SMALL CELL LUNG CANCER
     Dosage: 6 MG/ML
     Route: 042
     Dates: start: 20171106
  3. PACLITAXEL. [Suspect]
     Active Substance: PACLITAXEL
     Dosage: DAY 29 CYCLE 1
     Route: 042
     Dates: start: 20171205
  4. PACLITAXEL. [Suspect]
     Active Substance: PACLITAXEL
     Route: 042
     Dates: start: 20180425
  5. CARBOPLATIN. [Suspect]
     Active Substance: CARBOPLATIN
     Dosage: DAY 29 CYCLE 1, 10 MG/ML, 218 MG
     Route: 042
     Dates: start: 20171205
  6. PACLITAXEL. [Suspect]
     Active Substance: PACLITAXEL
     Dosage: DAY22 CYCLE 1
     Route: 042
     Dates: start: 20171127
  7. CARBOPLATIN. [Suspect]
     Active Substance: CARBOPLATIN
     Indication: NON-SMALL CELL LUNG CANCER
     Dosage: 10 MG/ML?222 MG
     Route: 042
     Dates: start: 20171106
  8. CARBOPLATIN. [Suspect]
     Active Substance: CARBOPLATIN
     Dosage: DAY8 CYCLE 1 10MG/ML?234 MG
     Route: 042
     Dates: start: 20171113
  9. ATEZOLIZUMAB. [Suspect]
     Active Substance: ATEZOLIZUMAB
     Indication: NON-SMALL CELL LUNG CANCER
     Route: 042
     Dates: start: 20171106
  10. ATEZOLIZUMAB. [Suspect]
     Active Substance: ATEZOLIZUMAB
     Dosage: 60MG/ML DAY 22 CYCLE 1
     Route: 042
     Dates: start: 20171127
  11. ATEZOLIZUMAB. [Suspect]
     Active Substance: ATEZOLIZUMAB
     Route: 042
     Dates: start: 20180327
  12. CARBOPLATIN. [Suspect]
     Active Substance: CARBOPLATIN
     Dosage: DAY22 CYCLE 1 10MG/ML?240 MG
     Route: 042
     Dates: start: 20171127
  13. ATEZOLIZUMAB. [Suspect]
     Active Substance: ATEZOLIZUMAB
     Route: 042
     Dates: start: 20180306
  14. ZOFRAN [Concomitant]
     Active Substance: ONDANSETRON HYDROCHLORIDE
     Indication: NAUSEA
     Dosage: 1 DF
     Route: 048
     Dates: start: 20171106
  15. ZOFRAN [Concomitant]
     Active Substance: ONDANSETRON HYDROCHLORIDE
     Indication: VOMITING
  16. ATEZOLIZUMAB. [Suspect]
     Active Substance: ATEZOLIZUMAB
     Route: 042
     Dates: start: 20180417
  17. PACLITAXEL. [Suspect]
     Active Substance: PACLITAXEL
     Dosage: DAY8 CYCLE 1
     Route: 042
     Dates: start: 20171113

REACTIONS (8)
  - Dyspnoea [Unknown]
  - Wheezing [Unknown]
  - Pneumonia [Unknown]
  - Tracheal fistula [Unknown]
  - Respiratory failure [Unknown]
  - Respiratory failure [Unknown]
  - Pneumonia [Unknown]
  - Tracheo-oesophageal fistula [Unknown]

NARRATIVE: CASE EVENT DATE: 20171114
